FAERS Safety Report 22634846 (Version 1)
Quarter: 2023Q2

REPORT INFORMATION
  Report Type: Spontaneous
  Country: US (occurrence: US)
  Receive Date: 20230623
  Receipt Date: 20230623
  Transmission Date: 20230722
  Serious: Yes (Other)
  Sender: FDA-Public Use
  Company Number: US-MYLANLABS-2023M1066104

PATIENT
  Age: 39 Year
  Sex: Female

DRUGS (2)
  1. PACLITAXEL [Suspect]
     Active Substance: PACLITAXEL
     Indication: Ovarian cancer
     Dosage: UNK, CYCLE {2 CYCLES (SYSTEMIC)}
     Route: 065
     Dates: start: 20180111, end: 20180201
  2. CARBOPLATIN [Suspect]
     Active Substance: CARBOPLATIN
     Indication: Ovarian cancer
     Dosage: UNK, CYCLE (2 CYCLES) (SYSTEMIC)
     Route: 065
     Dates: start: 20180111, end: 20180201

REACTIONS (1)
  - Weight decreased [Unknown]
